FAERS Safety Report 14271277 (Version 1)
Quarter: 2017Q4

REPORT INFORMATION
  Report Type: Spontaneous
  Country: JP (occurrence: JP)
  Receive Date: 20171211
  Receipt Date: 20171211
  Transmission Date: 20180321
  Serious: Yes (Other)
  Sender: FDA-Public Use
  Company Number: PHHY2017JP176554

PATIENT
  Age: 61 Year
  Sex: Female

DRUGS (6)
  1. DEXEMEDETOMIDINE [Suspect]
     Active Substance: DEXMEDETOMIDINE
     Dosage: 0.8 UG/KG/H
     Route: 065
  2. PROPOFOL. [Concomitant]
     Active Substance: PROPOFOL
     Indication: PRODUCT USED FOR UNKNOWN INDICATION
     Route: 065
  3. DILTIAZEM. [Suspect]
     Active Substance: DILTIAZEM
     Indication: DRUG WITHDRAWAL SYNDROME
     Dosage: 30 MG/H, UNK
     Route: 041
  4. FENTANYL. [Suspect]
     Active Substance: FENTANYL
     Indication: ANALGESIC THERAPY
     Dosage: 1.6 MG/KG (TOTAL DOSE)
     Route: 065
  5. DEXEMEDETOMIDINE [Suspect]
     Active Substance: DEXMEDETOMIDINE
     Indication: SEDATIVE THERAPY
     Dosage: 0.3 ?G/KG/H
     Route: 065
  6. NALOXONE [Concomitant]
     Active Substance: NALOXONE
     Indication: PRODUCT USED FOR UNKNOWN INDICATION
     Route: 065

REACTIONS (4)
  - Respiratory depression [Recovering/Resolving]
  - Drug ineffective [Unknown]
  - Product use in unapproved indication [Unknown]
  - Drug withdrawal syndrome [Unknown]
